FAERS Safety Report 4579439-X (Version None)
Quarter: 2005Q1

REPORT INFORMATION
  Report Type: 
  Country: None (occurrence: None)
  Receive Date: 20050209
  Receipt Date: 20050126
  Transmission Date: 20050727
  Serious: Yes (Life-Threatening, Hospitalization, Other)
  Sender: FDA-Public Use
  Company Number: US_0501111542

PATIENT
  Age: 57 Year
  Sex: Female

DRUGS (13)
  1. PROZAC [Suspect]
     Dosage: 40 MG/2 DAY
  2. ZYPREXA [Suspect]
     Dosage: 2.5 M/1 DAY
  3. BACLOFEN [Concomitant]
  4. KLONOPIN [Concomitant]
  5. LASIX [Concomitant]
  6. PREMARIN [Concomitant]
  7. IMITREX [Concomitant]
  8. PRILOSEC (OMERPAZOLE RATIOPHARM) [Concomitant]
  9. ATENOLOL [Concomitant]
  10. OXYCODEONE HYDROCHL W/OXYCODONE TAREPH/PARACET [Concomitant]
  11. NEURONTIN (GABAPENTIN PFIZER) [Concomitant]
  12. LORTAB [Concomitant]
  13. SUDAFED 12 HOUR [Concomitant]

REACTIONS (37)
  - AGITATION [None]
  - AMMONIA INCREASED [None]
  - ANXIETY [None]
  - ASTHENIA [None]
  - BLOOD GLUCOSE INCREASED [None]
  - DECREASED INTEREST [None]
  - DELIRIUM [None]
  - DRUG DEPENDENCE [None]
  - HEADACHE [None]
  - HEPATIC ENCEPHALOPATHY [None]
  - HEPATIC FAILURE [None]
  - HEPATO-LENTICULAR DEGENERATION [None]
  - HEPATOTOXICITY [None]
  - HERPES VIRUS INFECTION [None]
  - HYPERTENSION [None]
  - HYPERVENTILATION [None]
  - HYPOKALAEMIA [None]
  - INCOHERENT [None]
  - INSOMNIA [None]
  - INTERNATIONAL NORMALISED RATIO INCREASED [None]
  - INTERVERTEBRAL DISC PROTRUSION [None]
  - INTRACRANIAL PRESSURE INCREASED [None]
  - IRRITABILITY [None]
  - LIBIDO DECREASED [None]
  - MAJOR DEPRESSION [None]
  - MEMORY IMPAIRMENT [None]
  - NERVOUSNESS [None]
  - NITRITE URINE PRESENT [None]
  - OVERDOSE [None]
  - PAIN [None]
  - PHOTOPHOBIA [None]
  - RESPIRATORY ALKALOSIS [None]
  - SEPSIS [None]
  - SPINAL OSTEOARTHRITIS [None]
  - TREMOR [None]
  - WEIGHT INCREASED [None]
  - WHITE BLOOD CELL COUNT INCREASED [None]
